FAERS Safety Report 21167301 (Version 1)
Quarter: 2022Q3

REPORT INFORMATION
  Report Type: Spontaneous
  Country: RU (occurrence: None)
  Receive Date: 20220803
  Receipt Date: 20220803
  Transmission Date: 20221026
  Serious: Yes (Other)
  Sender: FDA-Public Use
  Company Number: 2022A269728

PATIENT
  Sex: Female

DRUGS (2)
  1. DAPAGLIFLOZIN [Interacting]
     Active Substance: DAPAGLIFLOZIN
     Indication: Cardiac failure chronic
     Dosage: UNKNOWN
     Route: 048
  2. INSULIN NOS [Interacting]
     Active Substance: INSULIN NOS
     Dosage: UNKNOWN
     Route: 065

REACTIONS (4)
  - Blood creatinine increased [Unknown]
  - COVID-19 [Unknown]
  - Glomerular filtration rate decreased [Unknown]
  - Drug interaction [Unknown]
